FAERS Safety Report 6380971-7 (Version None)
Quarter: 2009Q3

REPORT INFORMATION
  Report Type: 
  Country: None (occurrence: None)
  Receive Date: 20090925
  Receipt Date: 20090925
  Transmission Date: 20100115
  Serious: Yes (Other)
  Sender: FDA-Public Use
  Company Number: None

PATIENT
  Age: 52 Year
  Sex: Female
  Weight: 65.7716 kg

DRUGS (2)
  1. EXTRA STRENGTH ICYHOT PATCH MENTHAL 5% CHATTEM, INC. [Suspect]
     Indication: MUSCLE STRAIN
     Dosage: I LARGE PATCH 3-15/16^ X 7-13^ 2X/DAY FOR 3 DAYS TOP 6-8 HOURS
     Route: 061
     Dates: start: 20090919, end: 20090921
  2. EXTRA STRENGTH ICYHOT PATCH MENTHAL 5% CHATTEM, INC. [Suspect]
     Indication: PAIN
     Dosage: I LARGE PATCH 3-15/16^ X 7-13^ 2X/DAY FOR 3 DAYS TOP 6-8 HOURS
     Route: 061
     Dates: start: 20090919, end: 20090921

REACTIONS (3)
  - DRUG INEFFECTIVE [None]
  - ERYTHEMA [None]
  - PRURITUS [None]
